FAERS Safety Report 9236074 (Version 1)
Quarter: 2013Q2

REPORT INFORMATION
  Report Type: Spontaneous
  Country: US (occurrence: US)
  Receive Date: 20130417
  Receipt Date: 20130417
  Transmission Date: 20140414
  Serious: No
  Sender: FDA-Public Use
  Company Number: US-ABBOTT-12P-163-1009000-00

PATIENT
  Age: 82 Year
  Sex: Male

DRUGS (2)
  1. ZEMPLAR [Suspect]
     Indication: RENAL DISORDER
     Dates: start: 20121105
  2. UNKNOWN MEDICATION [Concomitant]
     Indication: BLOOD PRESSURE

REACTIONS (1)
  - Muscle spasms [Recovered/Resolved]
